FAERS Safety Report 24228171 (Version 1)
Quarter: 2024Q3

REPORT INFORMATION
  Report Type: Spontaneous
  Country: US (occurrence: US)
  Receive Date: 20240820
  Receipt Date: 20240820
  Transmission Date: 20241017
  Serious: Yes (Other)
  Sender: RANBAXY
  Company Number: US-SUN PHARMACEUTICAL INDUSTRIES LTD-2024R1-462885

PATIENT
  Age: 44 Year
  Sex: Male

DRUGS (3)
  1. MYCOPHENOLIC ACID [Suspect]
     Active Substance: MYCOPHENOLIC ACID
     Indication: Pleural effusion
     Dosage: 1.5 GRAM, BID
     Route: 065
  2. PREDNISONE [Suspect]
     Active Substance: PREDNISONE
     Indication: Pleural effusion
     Dosage: 40 MILLIGRAM, DAILY
     Route: 065
  3. RITUXIMAB [Suspect]
     Active Substance: RITUXIMAB
     Indication: Pleural effusion
     Dosage: 1 GRAM
     Route: 042

REACTIONS (2)
  - Condition aggravated [Unknown]
  - Disease recurrence [Unknown]
